FAERS Safety Report 8846641 (Version 1)
Quarter: 2012Q4

REPORT INFORMATION
  Report Type: 
  Country: US (occurrence: US)
  Receive Date: 20121017
  Receipt Date: 20121017
  Transmission Date: 20130627
  Serious: No
  Sender: FDA-Public Use
  Company Number: US-ROCHE-GNE215657

PATIENT
  Sex: Female

DRUGS (2)
  1. RAPTIVA [Suspect]
     Indication: PSORIASIS
     Dosage: .6 mL, 1/Week
     Route: 058
  2. DOVONEX CREAM [Concomitant]
     Indication: PRODUCT USED FOR UNKNOWN INDICATION

REACTIONS (3)
  - Erythema [Not Recovered/Not Resolved]
  - Pruritus [Unknown]
  - Sleep disorder [Unknown]
